FAERS Safety Report 21338427 (Version 1)
Quarter: 2022Q3

REPORT INFORMATION
  Report Type: Spontaneous
  Country: US (occurrence: US)
  Receive Date: 20220915
  Receipt Date: 20220915
  Transmission Date: 20221027
  Serious: Yes (Other)
  Sender: FDA-Public Use
  Company Number: US-MYLANLABS-2022M1093466

PATIENT
  Age: 69 Year
  Sex: Female

DRUGS (17)
  1. PREDNISONE [Suspect]
     Active Substance: PREDNISONE
     Indication: Mucous membrane pemphigoid
     Dosage: 20 MILLIGRAM, QD (SCHEDULE TO RECEIVE FOR 10 MONTHS)
     Route: 065
     Dates: start: 2017
  2. METHOTREXATE [Suspect]
     Active Substance: METHOTREXATE
     Indication: Mucous membrane pemphigoid
     Dosage: 15 MILLIGRAM, QW (SCHEDULE TO RECEIVE FOR 10 MONTHS)
     Route: 065
     Dates: start: 2017
  3. METHOTREXATE [Suspect]
     Active Substance: METHOTREXATE
     Dosage: 12.5 MILLIGRAM, QW
     Route: 065
     Dates: start: 202102
  4. METHOTREXATE [Suspect]
     Active Substance: METHOTREXATE
     Dosage: 20 MILLIGRAM, QW
     Route: 065
     Dates: start: 202108
  5. MYCOPHENOLATE MOFETIL [Suspect]
     Active Substance: MYCOPHENOLATE MOFETIL
     Indication: Mucous membrane pemphigoid
     Dosage: 1000 MILLIGRAM, BID
     Route: 048
     Dates: start: 2018
  6. RITUXIMAB [Suspect]
     Active Substance: RITUXIMAB
     Indication: Mucous membrane pemphigoid
     Dosage: 375 MILLIGRAM/SQ. METER, QW
     Route: 065
     Dates: start: 2017
  7. RITUXIMAB [Suspect]
     Active Substance: RITUXIMAB
     Dosage: 375 MILLIGRAM/SQ. METER, MONTHLY
     Route: 065
     Dates: start: 2017
  8. RITUXIMAB [Suspect]
     Active Substance: RITUXIMAB
     Dosage: 375 MILLIGRAM/SQ. METER (EVERY 4 MONTHS THEREAFTER)
     Route: 065
     Dates: start: 2018
  9. CYCLOPHOSPHAMIDE [Suspect]
     Active Substance: CYCLOPHOSPHAMIDE
     Indication: Mucous membrane pemphigoid
     Dosage: 2 MILLIGRAM/KILOGRAM, QD
     Route: 065
     Dates: start: 2018
  10. CYCLOPHOSPHAMIDE [Suspect]
     Active Substance: CYCLOPHOSPHAMIDE
     Dosage: 0.5 MILLIGRAM/KILOGRAM, QD
     Route: 065
     Dates: start: 2018
  11. PRIVIGEN [Suspect]
     Active Substance: HUMAN IMMUNOGLOBULIN G
     Indication: Mucous membrane pemphigoid
     Dosage: UNK, MONTHLY 2 G/KG
     Route: 042
     Dates: start: 2017
  12. BARICITINIB [Suspect]
     Active Substance: BARICITINIB
     Indication: Mucous membrane pemphigoid
     Dosage: 2 MILLIGRAM, QD
     Route: 065
     Dates: start: 2020
  13. TAMOXIFEN [Concomitant]
     Active Substance: TAMOXIFEN
     Indication: Hormone receptor positive breast cancer
     Dosage: UNK
     Route: 065
     Dates: end: 2020
  14. ZOLEDRONIC ACID [Concomitant]
     Active Substance: ZOLEDRONIC ACID
     Indication: Spinal compression fracture
     Dosage: UNK
     Route: 042
     Dates: start: 2018
  15. VORICONAZOLE [Concomitant]
     Active Substance: VORICONAZOLE
     Indication: Keratitis fungal
     Dosage: UNK
     Route: 061
     Dates: start: 2018
  16. AMPHOTERICIN B [Concomitant]
     Active Substance: AMPHOTERICIN B
     Indication: Keratitis fungal
     Dosage: UNK
     Route: 061
     Dates: start: 2018
  17. ANASTROZOLE [Concomitant]
     Active Substance: ANASTROZOLE
     Indication: Hormone receptor positive breast cancer
     Dosage: UNK
     Route: 065
     Dates: start: 201907

REACTIONS (3)
  - Spinal compression fracture [Unknown]
  - Keratitis fungal [Unknown]
  - Off label use [Recovering/Resolving]

NARRATIVE: CASE EVENT DATE: 20170101
